FAERS Safety Report 7624123-9 (Version None)
Quarter: 2011Q3

REPORT INFORMATION
  Report Type: 
  Country: None (occurrence: None)
  Receive Date: 20110720
  Receipt Date: 20110713
  Transmission Date: 20111222
  Serious: Yes (Death, Life-Threatening, Hospitalization)
  Sender: FDA-Public Use
  Company Number: US-TEVA-288601USA

PATIENT
  Sex: Male
  Weight: 85.806 kg

DRUGS (17)
  1. CALCIUM ACETATE [Concomitant]
     Route: 048
  2. ROSUVASTATIN [Concomitant]
     Dosage: 50 MILLIGRAM;
     Route: 048
  3. FLUOROURACIL [Suspect]
     Indication: HEAD AND NECK CANCER
     Route: 042
     Dates: start: 20110317, end: 20110321
  4. PRAVASTATIN [Concomitant]
     Dosage: 20 MILLIGRAM;
     Dates: start: 19950101
  5. B-KOMPLEX [Concomitant]
     Dosage: 100 MILLIGRAM;
  6. ACETYLSALICYLIC ACID SRT [Concomitant]
     Dosage: 81 MILLIGRAM;
  7. ACETAMINOPHEN [Concomitant]
  8. ALBUTEROL [Concomitant]
  9. MAGNESIUM HYDROXIDE [Concomitant]
  10. CHLORPROMAZINE [Concomitant]
     Dosage: 150 MILLIGRAM;
  11. OMEPRAZOLE [Concomitant]
     Dosage: 10 MILLIGRAM;
     Dates: start: 20030101
  12. VALSARTAN [Concomitant]
     Dosage: 320/25
     Dates: start: 19950101
  13. AMLODIPINE [Concomitant]
     Dosage: 10 MILLIGRAM;
     Dates: start: 19950101
  14. METOPROLOL TARTRATE [Concomitant]
     Dosage: 50 MILLIGRAM;
     Dates: start: 19950101
  15. CISPLATIN [Suspect]
     Indication: HEAD AND NECK CANCER
     Route: 042
     Dates: start: 20110317, end: 20110317
  16. BLINDED THERAPY [Suspect]
     Indication: HEAD AND NECK CANCER
     Route: 042
     Dates: start: 20110317, end: 20110317
  17. BISACODYL [Concomitant]

REACTIONS (4)
  - CARDIAC ARREST [None]
  - SEPSIS [None]
  - TUMOUR LYSIS SYNDROME [None]
  - RENAL FAILURE ACUTE [None]
